FAERS Safety Report 13959916 (Version 2)
Quarter: 2017Q4

REPORT INFORMATION
  Report Type: Spontaneous
  Country: ID (occurrence: ID)
  Receive Date: 20170911
  Receipt Date: 20171004
  Transmission Date: 20180320
  Serious: Yes (Other)
  Sender: FDA-Public Use
  Company Number: ID-REGENERON PHARMACEUTICALS, INC.-2017-21822

PATIENT

DRUGS (2)
  1. EYLEA [Suspect]
     Active Substance: AFLIBERCEPT
     Dosage: 2 MG, SECOND INJECTION
     Route: 031
     Dates: start: 20160319
  2. EYLEA [Suspect]
     Active Substance: AFLIBERCEPT
     Indication: DIABETIC RETINAL OEDEMA
     Dosage: 2 MG, FIRST INJECTION
     Route: 031
     Dates: start: 20160213

REACTIONS (2)
  - Visual acuity reduced [Recovering/Resolving]
  - Retinal thickening [Recovering/Resolving]

NARRATIVE: CASE EVENT DATE: 20160813
